FAERS Safety Report 4847050-9 (Version None)
Quarter: 2005Q4

REPORT INFORMATION
  Report Type: 
  Country: None (occurrence: None)
  Receive Date: 20051205
  Receipt Date: 20051128
  Transmission Date: 20060501
  Serious: Yes (Other)
  Sender: FDA-Public Use
  Company Number: 006157

PATIENT
  Sex: Female

DRUGS (4)
  1. MEDROXYPROGESTERONE ACETATE [Suspect]
     Indication: HORMONE REPLACEMENT THERAPY
     Dosage: ORAL
     Route: 048
     Dates: start: 19890101, end: 20011201
  2. PREMARIN [Suspect]
     Dosage: ORAL
     Route: 048
     Dates: start: 19890101, end: 20011201
  3. PROVERA [Suspect]
     Dosage: ORAL
     Route: 048
     Dates: start: 19890101, end: 20011201
  4. PREMPRO [Suspect]
     Dosage: ORAL
     Route: 048
     Dates: start: 19890101, end: 20011201

REACTIONS (1)
  - OVARIAN CANCER [None]
